FAERS Safety Report 12554009 (Version 1)
Quarter: 2016Q3

REPORT INFORMATION
  Report Type: Spontaneous
  Country: US (occurrence: US)
  Receive Date: 20160713
  Receipt Date: 20160713
  Transmission Date: 20161109
  Serious: No
  Sender: FDA-Public Use
  Company Number: US-NOVOPROD-492407

PATIENT
  Age: 39 Year
  Sex: Female

DRUGS (1)
  1. SAXENDA [Suspect]
     Active Substance: LIRAGLUTIDE
     Indication: PRODUCT USED FOR UNKNOWN INDICATION
     Dosage: 2.3MG, QD
     Route: 058
     Dates: start: 20160323, end: 20160421

REACTIONS (7)
  - Injection site infection [Recovered/Resolved]
  - Dizziness [Not Recovered/Not Resolved]
  - Burning sensation [Recovered/Resolved]
  - Dry mouth [Not Recovered/Not Resolved]
  - Thermal burn [Recovered/Resolved]
  - Injection site induration [Not Recovered/Not Resolved]
  - Headache [Not Recovered/Not Resolved]

NARRATIVE: CASE EVENT DATE: 20160420
